FAERS Safety Report 9113264 (Version 1)
Quarter: 2013Q1

REPORT INFORMATION
  Report Type: Spontaneous
  Country: DE (occurrence: DE)
  Receive Date: 20130211
  Receipt Date: 20130211
  Transmission Date: 20140127
  Serious: Yes (Hospitalization)
  Sender: FDA-Public Use
  Company Number: DE-ELI_LILLY_AND_COMPANY-DE201302000367

PATIENT
  Sex: Female

DRUGS (12)
  1. FORSTEO [Suspect]
     Indication: OSTEOPOROSIS
     Dosage: UNK
     Route: 058
     Dates: start: 20121107, end: 20121114
  2. FORSTEO [Suspect]
     Dosage: UNK, QD
     Route: 058
     Dates: start: 20121209
  3. ALLOPURINOL [Concomitant]
     Dosage: UNK UNK, UNKNOWN
     Route: 065
  4. CITALOPRAM [Concomitant]
     Dosage: UNK UNK, UNKNOWN
     Route: 065
  5. ASS [Concomitant]
     Dosage: UNK UNK, UNKNOWN
     Route: 065
  6. ARAVA [Concomitant]
     Dosage: 10 MG, UNKNOWN
     Route: 065
  7. BISOPROLOL [Concomitant]
     Dosage: 5 MG, UNKNOWN
     Route: 065
  8. CANDESARTAN [Concomitant]
     Dosage: 8 MG, UNKNOWN
     Route: 065
  9. PRAMIPEXOLE [Concomitant]
     Dosage: UNK UNK, OTHER
     Route: 065
  10. NOVALGIN                           /06276704/ [Concomitant]
     Route: 065
  11. LANTUS [Concomitant]
     Route: 065
  12. FENTANYL [Concomitant]
     Dosage: UNK, UNKNOWN
     Route: 065

REACTIONS (3)
  - Pneumonia [Recovered/Resolved]
  - Cardiac disorder [Recovered/Resolved]
  - Coma [Recovered/Resolved]
